FAERS Safety Report 4955319-2 (Version None)
Quarter: 2006Q1

REPORT INFORMATION
  Report Type: 
  Country: None (occurrence: None)
  Receive Date: 20060322
  Receipt Date: 20060310
  Transmission Date: 20060701
  Serious: Yes (Hospitalization)
  Sender: FDA-Public Use
  Company Number: 2005103562

PATIENT
  Age: 62 Year
  Sex: Female
  Weight: 46.8 kg

DRUGS (6)
  1. SUTENT [Suspect]
     Indication: GASTROINTESTINAL STROMAL TUMOUR
     Dosage: 50 MG (25 MG, QD FOR 4 WEEKS WITH 2 WEEKS WASHOUT), ORAL
     Route: 048
     Dates: start: 20050622, end: 20050627
  2. VIOKASE (PANCRELIPASE) [Concomitant]
  3. LISINOPRIL [Concomitant]
  4. LEVOTHYROXINE SODIUM [Concomitant]
  5. PROTONIX [Concomitant]
  6. ATIVAN [Concomitant]

REACTIONS (5)
  - ABDOMINAL PAIN [None]
  - EJECTION FRACTION DECREASED [None]
  - INTRACARDIAC THROMBUS [None]
  - PLEURAL EFFUSION [None]
  - THROMBOCYTOPENIA [None]
